FAERS Safety Report 20950861 (Version 1)
Quarter: 2022Q2

REPORT INFORMATION
  Report Type: Report from Study
  Country: US (occurrence: US)
  Receive Date: 20220613
  Receipt Date: 20220613
  Transmission Date: 20220721
  Serious: Yes (Hospitalization, Other)
  Sender: FDA-Public Use
  Company Number: US-GLAXOSMITHKLINE-US2022AMR090467

PATIENT

DRUGS (4)
  1. NIRAPARIB [Interacting]
     Active Substance: NIRAPARIB
     Indication: Ovarian cancer
     Dosage: 200 MG, QD
     Dates: start: 202006
  2. NIRAPARIB [Interacting]
     Active Substance: NIRAPARIB
     Dosage: 100 MG, QD
     Dates: start: 202007
  3. WELLBUTRIN XL [Interacting]
     Active Substance: BUPROPION HYDROCHLORIDE
     Indication: Product used for unknown indication
     Dosage: 300 MG
  4. WELLBUTRIN XL [Interacting]
     Active Substance: BUPROPION HYDROCHLORIDE
     Dosage: 150 MG

REACTIONS (10)
  - Platelet count decreased [Unknown]
  - Suicidal ideation [Unknown]
  - Anxiety [Unknown]
  - Hypertension [Recovering/Resolving]
  - Precancerous cells present [Unknown]
  - Depression [Unknown]
  - Fatigue [Unknown]
  - Arthralgia [Unknown]
  - Drug interaction [Unknown]
  - Product dose omission issue [Unknown]
